FAERS Safety Report 8371611-6 (Version None)
Quarter: 2012Q2

REPORT INFORMATION
  Report Type: 
  Country: None (occurrence: None)
  Receive Date: 20120518
  Receipt Date: 20120508
  Transmission Date: 20120825
  Serious: No
  Sender: FDA-Public Use
  Company Number: US-ASTRAZENECA-2012SE29736

PATIENT
  Sex: Male

DRUGS (6)
  1. ZETIA [Concomitant]
  2. COREG [Concomitant]
  3. CRESTOR [Suspect]
     Indication: BLOOD CHOLESTEROL ABNORMAL
     Route: 048
  4. PREVACID [Concomitant]
     Indication: DYSPEPSIA
  5. PLAVIX [Concomitant]
  6. DILANTIN [Concomitant]

REACTIONS (5)
  - DYSPEPSIA [None]
  - ABDOMINAL DISCOMFORT [None]
  - CHEST PAIN [None]
  - NAUSEA [None]
  - GASTROOESOPHAGEAL REFLUX DISEASE [None]
